FAERS Safety Report 9075298 (Version 1)
Quarter: 2013Q1

REPORT INFORMATION
  Report Type: Report from Study
  Country: US (occurrence: US)
  Receive Date: 20130129
  Receipt Date: 20130129
  Transmission Date: 20140127
  Serious: No
  Sender: FDA-Public Use
  Company Number: US-ABBOTT-12P-163-0923224-00

PATIENT
  Age: 36 Year
  Sex: Male

DRUGS (4)
  1. HUMIRA 40 MG/0.8 ML PEN [Suspect]
     Indication: CROHN^S DISEASE
  2. PRAVACHOL [Concomitant]
     Indication: BLOOD CHOLESTEROL ABNORMAL
     Dosage: 40 MG DAILY
  3. QUINAPRIL [Concomitant]
     Indication: BLOOD PRESSURE
     Dosage: 20 MG DAILY WITH 12.5 MG WATER PILL
  4. UNKNOWN WATER PILL [Concomitant]
     Indication: BLOOD PRESSURE
     Dosage: 12.5 MG DAILY WITH QUINAPRIL 20 MG

REACTIONS (3)
  - Incorrect dose administered [Recovered/Resolved]
  - Device malfunction [Recovered/Resolved]
  - Paraesthesia [Recovered/Resolved]
